FAERS Safety Report 9948993 (Version 2)
Quarter: 2014Q1

REPORT INFORMATION
  Report Type: Spontaneous
  Country: DE (occurrence: DE)
  Receive Date: 20140304
  Receipt Date: 20140318
  Transmission Date: 20141002
  Serious: Yes (Other)
  Sender: FDA-Public Use
  Company Number: DE-AMGEN-DEUSP2014014839

PATIENT
  Age: 61 Year
  Sex: Female

DRUGS (2)
  1. ENBREL [Suspect]
     Indication: RHEUMATOID ARTHRITIS
     Dosage: 50 MG, WEEKLY
     Route: 065
     Dates: start: 20131004
  2. PREDNISOLON                        /00016201/ [Concomitant]
     Dosage: 10 MG, DAILY

REACTIONS (5)
  - Rheumatoid arthritis [Unknown]
  - Movement disorder [Unknown]
  - Local swelling [Unknown]
  - Blood cholesterol increased [Unknown]
  - Influenza [Unknown]
